FAERS Safety Report 5710779-4 (Version None)
Quarter: 2008Q2

REPORT INFORMATION
  Report Type: 
  Country: None (occurrence: None)
  Receive Date: 20080418
  Receipt Date: 20080418
  Transmission Date: 20081010
  Serious: Yes (Other)
  Sender: FDA-Public Use
  Company Number: None

PATIENT
  Sex: Female

DRUGS (2)
  1. BUPROPION HCL [Suspect]
     Indication: ATTENTION DEFICIT/HYPERACTIVITY DISORDER
     Dosage: 300 MG 1 QAM PO
     Route: 048
     Dates: start: 20070901, end: 20071201
  2. BUPROPION HCL [Suspect]
     Indication: BIPOLAR II DISORDER
     Dosage: 300 MG 1 QAM PO
     Route: 048
     Dates: start: 20070901, end: 20071201

REACTIONS (2)
  - DRUG INEFFECTIVE [None]
  - THERAPEUTIC RESPONSE UNEXPECTED WITH DRUG SUBSTITUTION [None]
